FAERS Safety Report 8536987 (Version 4)
Quarter: 2015Q1

REPORT INFORMATION
  Report Type: Spontaneous
  Country: US (occurrence: US)
  Receive Date: 20120430
  Receipt Date: 20150309
  Transmission Date: 20150721
  Serious: Yes (Disabling, Other)
  Sender: FDA-Public Use
  Company Number: US-009507513-1204USA03749

PATIENT
  Sex: Male
  Weight: 105.67 kg

DRUGS (1)
  1. PROPECIA [Suspect]
     Active Substance: FINASTERIDE
     Indication: ALOPECIA
     Dosage: 1 MG, QD
     Route: 048
     Dates: start: 2005, end: 201108

REACTIONS (28)
  - Anxiety [Not Recovered/Not Resolved]
  - Ejaculation failure [Not Recovered/Not Resolved]
  - Skin disorder [Unknown]
  - Neuropathy peripheral [Unknown]
  - Bronchial hyperreactivity [Unknown]
  - Semen volume decreased [Unknown]
  - Cognitive disorder [Not Recovered/Not Resolved]
  - Depression [Not Recovered/Not Resolved]
  - Osteoarthritis [Unknown]
  - Insomnia [Unknown]
  - Fluid retention [Unknown]
  - Arthropathy [Unknown]
  - Hepatic enzyme increased [Unknown]
  - Gout [Unknown]
  - Psoriasis [Unknown]
  - Rosacea [Unknown]
  - Mean cell volume increased [Unknown]
  - Blood pressure inadequately controlled [Unknown]
  - Sexual dysfunction [Not Recovered/Not Resolved]
  - Erectile dysfunction [Not Recovered/Not Resolved]
  - Hyperlipidaemia [Unknown]
  - Stress [Not Recovered/Not Resolved]
  - Seizure [Unknown]
  - Ejaculation disorder [Not Recovered/Not Resolved]
  - Libido decreased [Not Recovered/Not Resolved]
  - Hypertension [Not Recovered/Not Resolved]
  - Carpal tunnel syndrome [Unknown]
  - Gynaecomastia [Unknown]

NARRATIVE: CASE EVENT DATE: 2005
